FAERS Safety Report 7843745 (Version 4)
Quarter: 2013Q4

REPORT INFORMATION
  Report Type: Spontaneous
  Country: US (occurrence: US)
  Receive Date: 20110307
  Receipt Date: 20131226
  Transmission Date: 20140711
  Serious: Yes (Hospitalization, Other)
  Sender: FDA-Public Use
  Company Number: US-BAYER-2011-020333

PATIENT
  Age: 33 Year
  Sex: Female
  Weight: 61.22 kg

DRUGS (14)
  1. YAZ [Suspect]
     Indication: CONTRACEPTION
     Dosage: UNK
     Route: 048
     Dates: start: 2006, end: 2009
  2. YAZ [Suspect]
     Indication: PREMENSTRUAL SYNDROME
  3. YASMIN [Suspect]
     Indication: CONTRACEPTION
     Dosage: UNK
     Dates: start: 2006, end: 2009
  4. YASMIN [Suspect]
     Indication: PREMENSTRUAL SYNDROME
  5. ORTHO [Concomitant]
  6. LOESTRIN [Concomitant]
  7. SEASONALE [Concomitant]
  8. NEXIUM [Concomitant]
  9. DONNATAL [Concomitant]
  10. CARAFATE [Concomitant]
     Dosage: 1 GRAM
  11. PROTONIX [Concomitant]
     Dosage: 40 MG, UNK
  12. ULTRAM [Concomitant]
     Dosage: 50 MG, UNK
  13. ZOFRAN [Concomitant]
     Dosage: 4 MG, UNK
  14. CIMETIDINE [Concomitant]
     Dosage: 800 MG, UNK

REACTIONS (9)
  - Menstrual disorder [None]
  - Nephrolithiasis [None]
  - Cholecystitis chronic [None]
  - Cholelithiasis [None]
  - Cholelithiasis [None]
  - Biliary colic [None]
  - Gallbladder polyp [None]
  - Pain [None]
  - Anxiety [None]
